FAERS Safety Report 4786841-X (Version None)
Quarter: 2005Q4

REPORT INFORMATION
  Report Type: 
  Country: None (occurrence: None)
  Receive Date: 20051003
  Receipt Date: 20051003
  Transmission Date: 20060501
  Serious: Yes (Hospitalization)
  Sender: FDA-Public Use
  Company Number: None

PATIENT
  Age: 68 Year
  Sex: Female
  Weight: 61.2356 kg

DRUGS (10)
  1. TARCEVA [Suspect]
     Indication: GLIOBLASTOMA MULTIFORME
     Dosage: 150 MG DAILY
     Dates: start: 20050804, end: 20050930
  2. DECADRON [Concomitant]
  3. PEPCID [Concomitant]
  4. FOSAMAX [Concomitant]
  5. OS CAL + D [Concomitant]
  6. LEVAQUIN [Concomitant]
  7. ASCORBIC ACID [Concomitant]
  8. BIOTIN [Concomitant]
  9. CHROMIUM [Concomitant]
  10. COD LIVER OIL [Concomitant]

REACTIONS (2)
  - PNEUMONIA [None]
  - THROMBOCYTOPENIA [None]
